FAERS Safety Report 9804075 (Version 1)
Quarter: 2014Q1

REPORT INFORMATION
  Report Type: Spontaneous
  Country: US (occurrence: None)
  Receive Date: 20140103
  Receipt Date: 20140103
  Transmission Date: 20141002
  Serious: Yes (Other)
  Sender: FDA-Public Use
  Company Number: 2013-US-004860

PATIENT
  Age: 54 Year
  Sex: Female

DRUGS (1)
  1. XYREM (SODIUM OXYBATE) ORAL SOLUTION, 500 MG/ML [Suspect]
     Indication: NARCOLEPSY
     Route: 048
     Dates: start: 201310, end: 2013

REACTIONS (5)
  - Deafness unilateral [None]
  - Tinnitus [None]
  - Feeling abnormal [None]
  - Cough [None]
  - Upper-airway cough syndrome [None]
